FAERS Safety Report 25422639 (Version 1)
Quarter: 2025Q2

REPORT INFORMATION
  Report Type: Spontaneous
  Country: US (occurrence: US)
  Receive Date: 20250611
  Receipt Date: 20250611
  Transmission Date: 20250717
  Serious: No
  Sender: BRAEBURN PHARMACEUTICALS
  Company Number: US-BRAEBURN-US-BRA-24-000965

PATIENT
  Sex: Female

DRUGS (4)
  1. BRIXADI [Suspect]
     Active Substance: BUPRENORPHINE
     Indication: Drug dependence
     Dosage: 24 MILLIGRAM (IN THE RIGHT UPPER QUADRANT)
     Route: 058
     Dates: start: 20240910, end: 20240910
  2. BRIXADI [Suspect]
     Active Substance: BUPRENORPHINE
     Dosage: 24 MILLIGRAM (IN THE LEFT UPPAR QUADRANT)
     Route: 058
     Dates: start: 20240917, end: 20240917
  3. BRIXADI [Suspect]
     Active Substance: BUPRENORPHINE
     Dosage: 32 MILLIGRAM (IN THE RIGHT LOWER QUADRANT)
     Route: 058
     Dates: start: 20240924, end: 20240924
  4. BRIXADI [Suspect]
     Active Substance: BUPRENORPHINE
     Dosage: 32 MILLIGRAM (IN THE LEFT LOWER QUADRANT)
     Route: 058
     Dates: start: 20241001, end: 20241001

REACTIONS (3)
  - Injection site nodule [Unknown]
  - Drug withdrawal syndrome [Not Recovered/Not Resolved]
  - Therapeutic response shortened [Unknown]

NARRATIVE: CASE EVENT DATE: 20240101
